FAERS Safety Report 8395662-0 (Version None)
Quarter: 2012Q2

REPORT INFORMATION
  Report Type: 
  Country: None (occurrence: None)
  Receive Date: 20120530
  Receipt Date: 20120127
  Transmission Date: 20120825
  Serious: No
  Sender: FDA-Public Use
  Company Number: US-GLAXOSMITHKLINE-A0963521A

PATIENT
  Age: 30 Year
  Sex: Female

DRUGS (10)
  1. SINGULAIR [Concomitant]
  2. NEBULIZER [Concomitant]
  3. VENTOLIN [Suspect]
     Indication: ASTHMA
     Dosage: 2PUFF TWICE PER DAY
     Route: 055
     Dates: start: 20100501
  4. PAIN MEDICATION [Concomitant]
  5. QVAR 40 [Concomitant]
  6. GABAPENTIN [Concomitant]
  7. NICODERM [Concomitant]
  8. SEREVENT [Concomitant]
  9. IBUPROFEN [Concomitant]
  10. CARBAMAZEPINE [Concomitant]

REACTIONS (2)
  - PRODUCT QUALITY ISSUE [None]
  - THERAPEUTIC RESPONSE DECREASED [None]
